FAERS Safety Report 4511955-9 (Version None)
Quarter: 2004Q4

REPORT INFORMATION
  Report Type: 
  Country: None (occurrence: None)
  Receive Date: 20041129
  Receipt Date: 20041117
  Transmission Date: 20050328
  Serious: Yes (Other)
  Sender: FDA-Public Use
  Company Number: GB-JNJFOC-20041106157

PATIENT
  Age: 11 Year
  Sex: Male
  Weight: 35.6 kg

DRUGS (1)
  1. CONCERTA [Suspect]
     Route: 049
     Dates: start: 20040906

REACTIONS (2)
  - CHEST PAIN [None]
  - PAIN IN EXTREMITY [None]
